FAERS Safety Report 9220624 (Version 3)
Quarter: 2013Q4

REPORT INFORMATION
  Report Type: Spontaneous
  Country: US (occurrence: US)
  Receive Date: 20130409
  Receipt Date: 20131230
  Transmission Date: 20140711
  Serious: Yes (Hospitalization)
  Sender: FDA-Public Use
  Company Number: US-BAYER-2013-044842

PATIENT
  Age: 41 Year
  Sex: Female
  Weight: 58.96 kg

DRUGS (6)
  1. YAZ [Suspect]
     Dosage: UNK
     Dates: start: 200701, end: 200710
  2. YASMIN [Suspect]
     Dosage: UNK
     Dates: start: 200701, end: 200710
  3. LEVOTHYROXINE [Concomitant]
     Dosage: UNK
     Dates: start: 1998, end: 2011
  4. ARMOUR THYROID [Concomitant]
  5. TORADOL [Concomitant]
  6. IRON [Concomitant]
     Dosage: UNK
     Route: 048
     Dates: start: 20070617

REACTIONS (3)
  - Pulmonary embolism [Recovered/Resolved]
  - Pain [Recovered/Resolved]
  - Injury [Recovered/Resolved]
